FAERS Safety Report 23663257 (Version 1)
Quarter: 2024Q1

REPORT INFORMATION
  Report Type: Spontaneous
  Country: IN (occurrence: IN)
  Receive Date: 20240322
  Receipt Date: 20240322
  Transmission Date: 20240410
  Serious: Yes (Other)
  Sender: FDA-Public Use
  Company Number: IN-002147023-NVSC2024IN060683

PATIENT
  Age: 19 Year
  Sex: Male

DRUGS (6)
  1. CLOFAZIMINE [Suspect]
     Active Substance: CLOFAZIMINE
     Indication: Type 2 lepra reaction
     Dosage: 200 MG, UNKNOWN
     Route: 065
  2. CLOFAZIMINE [Suspect]
     Active Substance: CLOFAZIMINE
     Dosage: 100 MG, UNKNOWN
     Route: 065
  3. PREDNISOLONE [Suspect]
     Active Substance: PREDNISOLONE
     Indication: Type 2 lepra reaction
     Dosage: 5 MG, UNKNOWN
     Route: 065
  4. PREDNISOLONE [Suspect]
     Active Substance: PREDNISOLONE
     Dosage: 40 MG, QD
     Route: 065
  5. PREDNISOLONE [Suspect]
     Active Substance: PREDNISOLONE
     Dosage: 10 MG, UNKNOWN
     Route: 065
  6. PREDNISOLONE [Suspect]
     Active Substance: PREDNISOLONE
     Dosage: INCREASING THE PREVIOUS DOSE BY 20 MG/DAY
     Route: 065

REACTIONS (5)
  - Type 2 lepra reaction [Unknown]
  - Condition aggravated [Unknown]
  - Ichthyosis [Unknown]
  - Pigmentation disorder [Unknown]
  - Xerosis [Unknown]
